FAERS Safety Report 6881972-2 (Version None)
Quarter: 2010Q3

REPORT INFORMATION
  Report Type: 
  Country: None (occurrence: None)
  Receive Date: 20100727
  Receipt Date: 20090629
  Transmission Date: 20110219
  Serious: No
  Sender: FDA-Public Use
  Company Number: US-MYLANLABS-2009S1011763

PATIENT
  Age: 78 Year
  Sex: Female

DRUGS (5)
  1. SULINDAC [Suspect]
     Indication: RHEUMATOID ARTHRITIS
     Route: 048
     Dates: start: 20090102, end: 20090501
  2. SULINDAC [Suspect]
     Indication: PAIN
     Route: 048
     Dates: start: 20090102, end: 20090501
  3. SULINDAC [Suspect]
     Indication: INFLAMMATION
     Route: 048
     Dates: start: 20090102, end: 20090501
  4. ACETAMINOPHEN [Concomitant]
     Indication: PAIN
     Route: 048
  5. ENALAPRIL MALEATE AND HYDROCHLOROTHIAZIDE [Concomitant]
     Indication: BLOOD PRESSURE INCREASED
     Route: 048
     Dates: start: 20010101

REACTIONS (3)
  - DRUG INEFFECTIVE [None]
  - INFLAMMATION [None]
  - PAIN [None]
